FAERS Safety Report 4805426-X (Version None)
Quarter: 2005Q4

REPORT INFORMATION
  Report Type: 
  Country: None (occurrence: None)
  Receive Date: 20051018
  Receipt Date: 20051010
  Transmission Date: 20060501
  Serious: Yes (Hospitalization)
  Sender: FDA-Public Use
  Company Number: 2005140563

PATIENT
  Age: 73 Year
  Sex: Female

DRUGS (5)
  1. LIPITOR [Suspect]
     Indication: DYSLIPIDAEMIA
     Dosage: 10 MG (10 MG, 1 IN 1 D), ORAL
     Route: 048
     Dates: start: 20001001
  2. ETOFIBRATE (ETOFIBRATE) [Concomitant]
  3. INSULIN [Concomitant]
  4. METFORMIN (METFORMIN) [Concomitant]
  5. ALL OTHER THERAPEUTIC PRODUCTS (ALL OTHER THERAPEUTIC PRODUCTS) [Concomitant]

REACTIONS (3)
  - BLOOD GLUCOSE ABNORMAL [None]
  - BLOOD TRIGLYCERIDES ABNORMAL [None]
  - CARDIOVASCULAR DISORDER [None]
